FAERS Safety Report 6994255-7 (Version None)
Quarter: 2010Q3

REPORT INFORMATION
  Report Type: 
  Country: None (occurrence: None)
  Receive Date: 20100917
  Receipt Date: 20071009
  Transmission Date: 20110219
  Serious: Yes (Other)
  Sender: FDA-Public Use
  Company Number: US-ASTRAZENECA-2006UW21904

PATIENT
  Age: 15817 Day
  Sex: Female
  Weight: 64.9 kg

DRUGS (9)
  1. SEROQUEL [Suspect]
     Indication: SLEEP DISORDER
     Dosage: 100 MG AND 200 MG TABLET DISPENSED
     Route: 048
     Dates: start: 20011011
  2. SEROQUEL [Suspect]
     Route: 048
  3. KLONOPIN [Concomitant]
     Dates: start: 20000206
  4. TRAZODONE HCL [Concomitant]
     Dosage: 200 MG - 800 MG
     Dates: start: 20010609
  5. REMERON [Concomitant]
     Dosage: 15 MG - 90 MG
     Route: 048
     Dates: start: 20000206
  6. GLUCOPHAGE [Concomitant]
     Dosage: 500 MG - 2500 MG
     Dates: start: 20010206
  7. AMARYL [Concomitant]
     Dates: start: 20010206
  8. ALBUTEROL [Concomitant]
     Dates: start: 20011006
  9. VALIUM [Concomitant]
     Dates: start: 20000206

REACTIONS (1)
  - PANCREATITIS [None]
